FAERS Safety Report 10154950 (Version 1)
Quarter: 2014Q2

REPORT INFORMATION
  Report Type: Spontaneous
  Country: US (occurrence: US)
  Receive Date: 20140506
  Receipt Date: 20140506
  Transmission Date: 20141212
  Serious: No
  Sender: FDA-Public Use
  Company Number: US-BAYER-2014-066392

PATIENT
  Age: 28 Year
  Sex: Female
  Weight: 99 kg

DRUGS (4)
  1. ALEVE CAPLET [Suspect]
     Indication: ANALGESIC THERAPY
     Dosage: 1 DF, PRN
     Route: 048
  2. ALEVE CAPLET [Suspect]
     Indication: HEADACHE
  3. ALEVE CAPLET [Suspect]
     Indication: NECK PAIN
  4. ALBUTEROL INHALER [Concomitant]
     Dosage: UNK

REACTIONS (1)
  - Therapeutic response changed [None]
